FAERS Safety Report 24630880 (Version 1)
Quarter: 2024Q4

REPORT INFORMATION
  Report Type: Spontaneous
  Country: US (occurrence: None)
  Receive Date: 20241116
  Receipt Date: 20241116
  Transmission Date: 20250115
  Serious: Yes (Disabling)
  Sender: Public
  Company Number: None

PATIENT
  Age: 58 Year
  Sex: Female
  Weight: 97.65 kg

DRUGS (12)
  1. EXEMESTANE [Suspect]
     Active Substance: EXEMESTANE
     Indication: Breast cancer
     Dosage: OTHER QUANTITY : 1 TABLET(S);?FREQUENCY : DAILY;?
     Route: 048
     Dates: start: 20240924, end: 20241022
  2. LISINOPRIL [Concomitant]
     Active Substance: LISINOPRIL
  3. ATORVASTATIN [Concomitant]
     Active Substance: ATORVASTATIN
  4. MIRABEGRON [Concomitant]
     Active Substance: MIRABEGRON
  5. DULOXETINE [Concomitant]
     Active Substance: DULOXETINE
  6. TOPIRAMATE [Concomitant]
     Active Substance: TOPIRAMATE
  7. PROPRANOLOL [Concomitant]
     Active Substance: PROPRANOLOL HYDROCHLORIDE
  8. MOUNJARO [Concomitant]
     Active Substance: TIRZEPATIDE
  9. TAMOXIFEN [Concomitant]
     Active Substance: TAMOXIFEN
  10. VITAMINS [Concomitant]
     Active Substance: VITAMINS
  11. FIBER THERAPY (CALCIUM POLYCARBOPHIL) [Concomitant]
     Active Substance: CALCIUM POLYCARBOPHIL
  12. PROBIOTICS NOS [Concomitant]
     Active Substance: PROBIOTICS NOS

REACTIONS (4)
  - Dizziness [None]
  - Alopecia [None]
  - Fatigue [None]
  - Cataract [None]

NARRATIVE: CASE EVENT DATE: 20241022
